FAERS Safety Report 11179274 (Version 6)
Quarter: 2015Q4

REPORT INFORMATION
  Report Type: Spontaneous
  Country: HU (occurrence: HU)
  Receive Date: 20150610
  Receipt Date: 20151125
  Transmission Date: 20160304
  Serious: Yes (Other)
  Sender: FDA-Public Use
  Company Number: HU-AMGEN-HUNSP2015056138

PATIENT
  Age: 15 Year
  Sex: Male

DRUGS (2)
  1. ENBREL [Suspect]
     Active Substance: ETANERCEPT
     Indication: JUVENILE IDIOPATHIC ARTHRITIS
     Dosage: 0.8 ML, 2X/WEEK
     Route: 065
     Dates: start: 2009
  2. ENBREL [Suspect]
     Active Substance: ETANERCEPT
     Dosage: 0.8 ML, WEEKLY 1X
     Route: 065

REACTIONS (6)
  - Arthralgia [Recovered/Resolved]
  - Inflammatory marker increased [Recovered/Resolved]
  - Diarrhoea haemorrhagic [Recovered/Resolved]
  - Drug ineffective [Unknown]
  - Abdominal pain [Recovered/Resolved]
  - Colitis ulcerative [Recovered/Resolved]

NARRATIVE: CASE EVENT DATE: 201501
